FAERS Safety Report 10154277 (Version 1)
Quarter: 2014Q2

REPORT INFORMATION
  Report Type: Spontaneous
  Country: US (occurrence: US)
  Receive Date: 20140506
  Receipt Date: 20140506
  Transmission Date: 20141212
  Serious: Yes (Hospitalization, Other)
  Sender: FDA-Public Use
  Company Number: US-ROXANE LABORATORIES, INC.-2014-RO-00692RO

PATIENT
  Age: 51 Year
  Sex: Male

DRUGS (1)
  1. LITHIUM CARBONATE [Suspect]
     Indication: PRODUCT USED FOR UNKNOWN INDICATION
     Dosage: 3000 MG
     Route: 065

REACTIONS (3)
  - Brugada syndrome [Recovered/Resolved]
  - Antipsychotic drug level above therapeutic [Recovered/Resolved]
  - Renal failure acute [Recovered/Resolved]
